FAERS Safety Report 6348682-1 (Version None)
Quarter: 2009Q3

REPORT INFORMATION
  Report Type: 
  Country: None (occurrence: None)
  Receive Date: 20090911
  Receipt Date: 20090831
  Transmission Date: 20100115
  Serious: Yes (Hospitalization, Other)
  Sender: FDA-Public Use
  Company Number: DE-PFIZER INC-2009243760

PATIENT
  Age: 75 Year

DRUGS (9)
  1. INSPRA [Suspect]
     Indication: CARDIAC FAILURE
     Dosage: 25 MG DAILY
     Route: 048
     Dates: start: 20090610, end: 20090620
  2. SIMVASTATIN [Concomitant]
     Dosage: 30 MG, DAILY
     Route: 048
  3. MARCUMAR [Concomitant]
     Dosage: UNK
     Route: 048
  4. DELIX [Concomitant]
     Dosage: 10 MG, DAILY
     Route: 048
  5. ASS-RATIOPHARM [Concomitant]
     Dosage: UNK
  6. BISOHEXAL [Concomitant]
     Dosage: 10 MG, DAILY
  7. TORASEMIDE [Concomitant]
     Dosage: 10 MG, UNK
     Route: 048
  8. PROVAS COMP [Concomitant]
     Dosage: 25 MG/320 MG 1X/DAY
     Route: 048
  9. CLOPIDOGREL [Concomitant]
     Dosage: 75 MG, DAILY
     Route: 048

REACTIONS (5)
  - DERMATITIS [None]
  - DYSPHAGIA [None]
  - EPIGLOTTITIS [None]
  - OROPHARYNGEAL PAIN [None]
  - PEMPHIGOID [None]
